FAERS Safety Report 9459200 (Version 2)
Quarter: 2014Q2

REPORT INFORMATION
  Report Type: Report from Study
  Country: US (occurrence: US)
  Receive Date: 20130814
  Receipt Date: 20140612
  Transmission Date: 20141212
  Serious: Yes (Hospitalization)
  Sender: FDA-Public Use
  Company Number: US-EXELIXIS-XL18413002640

PATIENT
  Age: 65 Year
  Sex: Male
  Weight: 74.38 kg

DRUGS (19)
  1. XL184 [Suspect]
     Indication: PROSTATE CANCER
     Dosage: 60 MG, QD
     Route: 048
     Dates: start: 20130416, end: 20130428
  2. XL184 [Suspect]
     Dosage: 60 MG, QD
     Route: 048
     Dates: start: 20130523
  3. XL184 [Suspect]
     Indication: PROSTATE CANCER
     Dosage: 5 MG, BID
     Route: 048
     Dates: start: 20130416, end: 20130429
  4. XL184 [Suspect]
     Dosage: 5 MG, BID
     Route: 048
     Dates: start: 20130523
  5. COLACE [Concomitant]
  6. ASA [Concomitant]
  7. PYRIDOXINE [Concomitant]
  8. AMOXICILLIN [Concomitant]
  9. METOPROLOL SUCCINATE [Concomitant]
  10. HYDRALAZINE [Concomitant]
  11. INDOMETHACIN [Concomitant]
  12. GLIPIZIDE [Concomitant]
  13. FENTANYL [Concomitant]
  14. LIPITOR [Concomitant]
  15. CARDIZEM [Concomitant]
  16. PREDNISONE [Concomitant]
  17. LEXAPRO [Concomitant]
  18. PERCOCET [Concomitant]
  19. CENTRUM SILVER [Concomitant]

REACTIONS (1)
  - Myositis [Recovered/Resolved]
